FAERS Safety Report 8462334-3 (Version None)
Quarter: 2012Q2

REPORT INFORMATION
  Report Type: 
  Country: None (occurrence: None)
  Receive Date: 20120625
  Receipt Date: 20120618
  Transmission Date: 20120825
  Serious: Yes (Hospitalization)
  Sender: FDA-Public Use
  Company Number: BR-PFIZER INC-2012147072

PATIENT
  Age: 51 Year
  Sex: Female
  Weight: 59 kg

DRUGS (4)
  1. METOCLOPRAMIDE HYDROCHLORIDE [Concomitant]
     Indication: VOMITING
  2. DIPIRONA [Concomitant]
     Indication: PAIN
  3. VONAU [Concomitant]
     Indication: NAUSEA
  4. SUTENT [Suspect]
     Indication: RENAL CANCER
     Dosage: 50 MG, 1X/DAY
     Route: 048
     Dates: end: 20120618

REACTIONS (2)
  - RENAL COLIC [None]
  - ABDOMINAL PAIN [None]
